FAERS Safety Report 6863732-1 (Version None)
Quarter: 2010Q3

REPORT INFORMATION
  Report Type: 
  Country: None (occurrence: None)
  Receive Date: 20100721
  Receipt Date: 20080306
  Transmission Date: 20110219
  Serious: No
  Sender: FDA-Public Use
  Company Number: US-PFIZER INC-2008022343

PATIENT
  Sex: Male
  Weight: 81.6 kg

DRUGS (2)
  1. CHANTIX [Suspect]
     Indication: SMOKING CESSATION THERAPY
     Dates: start: 20080219
  2. CILOSTAZOL [Concomitant]
     Indication: ARTERIAL OCCLUSIVE DISEASE
     Dates: start: 20080301

REACTIONS (3)
  - FATIGUE [None]
  - NAUSEA [None]
  - SOMNOLENCE [None]
